FAERS Safety Report 8307690-1 (Version None)
Quarter: 2012Q2

REPORT INFORMATION
  Report Type: 
  Country: None (occurrence: None)
  Receive Date: 20120424
  Receipt Date: 20120424
  Transmission Date: 20120825
  Serious: Yes (Other)
  Sender: FDA-Public Use
  Company Number: None

PATIENT
  Age: 38 Year
  Sex: Female
  Weight: 61.234 kg

DRUGS (1)
  1. CYMBALTA [Suspect]
     Dosage: 30MG
     Route: 048

REACTIONS (6)
  - VOMITING [None]
  - PARAESTHESIA [None]
  - HEADACHE [None]
  - DRUG WITHDRAWAL SYNDROME [None]
  - DIARRHOEA [None]
  - NAUSEA [None]
